FAERS Safety Report 9111066 (Version 1)
Quarter: 2013Q1

REPORT INFORMATION
  Report Type: Spontaneous
  Country: US (occurrence: US)
  Receive Date: 20130219
  Receipt Date: 20130219
  Transmission Date: 20140127
  Serious: No
  Sender: FDA-Public Use
  Company Number: US-BRISTOL-MYERS SQUIBB COMPANY-16917783

PATIENT
  Sex: Female

DRUGS (3)
  1. ORENCIA [Suspect]
     Indication: RHEUMATOID ARTHRITIS
     Route: 042
     Dates: start: 200611
  2. FLU VACCINE [Suspect]
     Dates: start: 201111
  3. PNEUMONIA SHOT [Suspect]
     Dates: start: 201112

REACTIONS (3)
  - Malaise [Unknown]
  - Headache [Unknown]
  - Macule [Unknown]
